FAERS Safety Report 11475157 (Version 1)
Quarter: 2015Q3

REPORT INFORMATION
  Report Type: Spontaneous
  Country: US (occurrence: None)
  Receive Date: 20150908
  Receipt Date: 20150908
  Transmission Date: 20151125
  Serious: Yes (Disabling)
  Sender: FDA-Public Use
  Company Number: None

PATIENT
  Age: 56 Year
  Sex: Male
  Weight: 76.2 kg

DRUGS (3)
  1. CIALIS [Suspect]
     Active Substance: TADALAFIL
     Indication: ERECTILE DYSFUNCTION
     Route: 048
     Dates: start: 20150619, end: 20150905
  2. DOXYCYCLINE. [Concomitant]
     Active Substance: DOXYCYCLINE
  3. MULTIVITAMIN [Concomitant]
     Active Substance: VITAMINS

REACTIONS (4)
  - Rash pustular [None]
  - Urticaria [None]
  - Rash pruritic [None]
  - Secretion discharge [None]

NARRATIVE: CASE EVENT DATE: 20150905
